FAERS Safety Report 24824280 (Version 1)
Quarter: 2025Q1

REPORT INFORMATION
  Report Type: Spontaneous
  Country: US (occurrence: US)
  Receive Date: 20250109
  Receipt Date: 20250109
  Transmission Date: 20250409
  Serious: Yes (Death)
  Sender: PERRIGO
  Company Number: US-PERRIGO-25US000270

PATIENT
  Age: 27 Year
  Sex: Male

DRUGS (3)
  1. ACETAMINOPHEN [Suspect]
     Active Substance: ACETAMINOPHEN
     Indication: Suspected suicide
     Route: 048
  2. METHAMPHETAMINE [Suspect]
     Active Substance: METHAMPHETAMINE
     Indication: Suspected suicide
     Route: 048
  3. CANNABIS SATIVA SUBSP. INDICA TOP [Suspect]
     Active Substance: CANNABIS SATIVA SUBSP. INDICA TOP
     Indication: Suspected suicide
     Route: 048

REACTIONS (2)
  - Exposure to toxic agent [Fatal]
  - Completed suicide [Fatal]

NARRATIVE: CASE EVENT DATE: 20230101
